FAERS Safety Report 9290555 (Version 1)
Quarter: 2013Q2

REPORT INFORMATION
  Report Type: Spontaneous
  Country: IT (occurrence: IT)
  Receive Date: 20130515
  Receipt Date: 20130515
  Transmission Date: 20140414
  Serious: Yes (Other)
  Sender: FDA-Public Use
  Company Number: IT-PFIZER INC-2013146191

PATIENT
  Age: 69 Year
  Sex: 0

DRUGS (1)
  1. TORVAST [Suspect]
     Dosage: 20 MG DAILY
     Route: 048
     Dates: start: 20130121, end: 20130423

REACTIONS (2)
  - Gamma-glutamyltransferase increased [Unknown]
  - Hypertransaminasaemia [Recovering/Resolving]
